FAERS Safety Report 24292029 (Version 3)
Quarter: 2025Q1

REPORT INFORMATION
  Report Type: Report from Study
  Country: ES (occurrence: ES)
  Receive Date: 20240906
  Receipt Date: 20250109
  Transmission Date: 20250408
  Serious: Yes (Hospitalization, Other)
  Sender: JOHNSON AND JOHNSON
  Company Number: ES-JNJFOC-20240903572

PATIENT
  Age: 73 Year
  Sex: Male
  Weight: 76 kg

DRUGS (32)
  1. SIMPONI [Suspect]
     Active Substance: GOLIMUMAB
     Indication: Product used for unknown indication
     Dosage: DATE OF FIRST DOSE: 30-DEC-2020?DATE OF MOST RECENT DOSE: 07-NOV-2022
     Route: 058
     Dates: start: 20180704
  2. SIMPONI [Suspect]
     Active Substance: GOLIMUMAB
     Dosage: D
     Route: 058
     Dates: start: 20190426
  3. MESALAMINE [Concomitant]
     Active Substance: MESALAMINE
     Dates: start: 20131218, end: 20210521
  4. MESALAMINE [Concomitant]
     Active Substance: MESALAMINE
     Dates: start: 20210522
  5. FERROUS SULFATE [Concomitant]
     Active Substance: FERROUS SULFATE
     Indication: Iron deficiency
     Dates: start: 20230926, end: 20231226
  6. MESALAMINE [Concomitant]
     Active Substance: MESALAMINE
     Dates: start: 20200830, end: 20200922
  7. INTESTIFALK [Concomitant]
     Route: 054
     Dates: start: 20200922, end: 20201027
  8. BECLOMETHASONE DIPROPIONATE [Concomitant]
     Active Substance: BECLOMETHASONE DIPROPIONATE
     Dates: start: 20201027, end: 20201227
  9. AMOXICILLIN\CLAVULANATE POTASSIUM [Concomitant]
     Active Substance: AMOXICILLIN\CLAVULANATE POTASSIUM
     Indication: Chronic obstructive pulmonary disease
     Dates: start: 20221107, end: 20221113
  10. AMOXICILLIN\CLAVULANATE POTASSIUM [Concomitant]
     Active Substance: AMOXICILLIN\CLAVULANATE POTASSIUM
     Indication: COVID-19
  11. AMOXICILLIN\CLAVULANATE POTASSIUM [Concomitant]
     Active Substance: AMOXICILLIN\CLAVULANATE POTASSIUM
     Indication: Infection
  12. PREDNISONE [Concomitant]
     Active Substance: PREDNISONE
     Indication: Chronic obstructive pulmonary disease
     Dates: start: 20221107, end: 20221118
  13. PREDNISONE [Concomitant]
     Active Substance: PREDNISONE
     Indication: COVID-19
     Dates: start: 20210514, end: 20210519
  14. PREDNISONE [Concomitant]
     Active Substance: PREDNISONE
     Indication: Bacterial infection
  15. PREDNISONE [Concomitant]
     Active Substance: PREDNISONE
     Indication: Pneumonia
  16. REMDESIVIR [Concomitant]
     Active Substance: REMDESIVIR
     Indication: Chronic obstructive pulmonary disease
     Dates: start: 20221107, end: 20221109
  17. REMDESIVIR [Concomitant]
     Active Substance: REMDESIVIR
     Indication: COVID-19
  18. REMDESIVIR [Concomitant]
     Active Substance: REMDESIVIR
     Indication: Infection
  19. CIPROFLOXACIN [Concomitant]
     Active Substance: CIPROFLOXACIN
     Indication: Chronic obstructive pulmonary disease
     Dates: start: 20221201, end: 20221227
  20. CIPROFLOXACIN [Concomitant]
     Active Substance: CIPROFLOXACIN
     Indication: COVID-19
  21. CIPROFLOXACIN [Concomitant]
     Active Substance: CIPROFLOXACIN
     Indication: Infection
  22. VANCOMYCIN [Concomitant]
     Active Substance: VANCOMYCIN
     Indication: Clostridium difficile colitis
     Dates: start: 20221228, end: 20230110
  23. CLOPIDOGREL [Concomitant]
     Active Substance: CLOPIDOGREL BISULFATE
     Indication: Transient ischaemic attack
     Dates: start: 20131120
  24. CALCIUM CARBONATE\CHOLECALCIFEROL [Concomitant]
     Active Substance: CALCIUM CARBONATE\CHOLECALCIFEROL
     Indication: Osteoporosis
     Dates: start: 20150511
  25. CALCIFEDIOL [Concomitant]
     Active Substance: CALCIFEDIOL
     Indication: Osteoporosis
     Dates: start: 20181120
  26. ATORVASTATIN [Concomitant]
     Active Substance: ATORVASTATIN
     Indication: Hypercholesterolaemia
     Dates: start: 20140110
  27. CEFDITOREN [Concomitant]
     Active Substance: CEFDITOREN
     Indication: Pneumonia
     Dates: start: 20210514, end: 20210521
  28. ACETYLCYSTEINE [Concomitant]
     Active Substance: ACETYLCYSTEINE
     Indication: Chronic obstructive pulmonary disease
     Dates: start: 20220126
  29. BECLOMETHASONE DIPROPIONATE\FORMOTEROL FUMARATE\GLYCOPYRROLATE [Concomitant]
     Active Substance: BECLOMETHASONE DIPROPIONATE\FORMOTEROL FUMARATE\GLYCOPYRROLATE
     Indication: Chronic obstructive pulmonary disease
     Dates: start: 20220126
  30. ATROVENT [Concomitant]
     Active Substance: IPRATROPIUM BROMIDE
     Indication: Radiation pneumonitis
     Dates: start: 20110921
  31. CODEINE PHOSPHATE [Concomitant]
     Active Substance: CODEINE PHOSPHATE
     Indication: Radiation pneumonitis
     Dates: start: 20190402
  32. CODEINE PHOSPHATE [Concomitant]
     Active Substance: CODEINE PHOSPHATE
     Indication: Chronic obstructive pulmonary disease

REACTIONS (4)
  - Chronic obstructive pulmonary disease [Recovered/Resolved]
  - COVID-19 [Recovered/Resolved]
  - Pseudomonas infection [Recovered/Resolved]
  - Aspergillus infection [Recovered/Resolved]

NARRATIVE: CASE EVENT DATE: 20221107
